FAERS Safety Report 13894865 (Version 1)
Quarter: 2017Q3

REPORT INFORMATION
  Report Type: Spontaneous
  Country: US (occurrence: None)
  Receive Date: 20170817
  Receipt Date: 20170817
  Transmission Date: 20171127
  Serious: Yes (Hospitalization)
  Sender: FDA-Public Use
  Company Number: None

PATIENT
  Age: 68 Year
  Sex: Female
  Weight: 77.3 kg

DRUGS (1)
  1. VANCOMYCIN 10 GRAMS FRESENIUS [Suspect]
     Active Substance: VANCOMYCIN HYDROCHLORIDE
     Indication: INTERVERTEBRAL DISCITIS
     Route: 042
     Dates: start: 20170728

REACTIONS (6)
  - Nausea [None]
  - Back pain [None]
  - Hypophagia [None]
  - Acute kidney injury [None]
  - Drug level increased [None]
  - Vomiting [None]

NARRATIVE: CASE EVENT DATE: 20170809
